FAERS Safety Report 7024136-4 (Version None)
Quarter: 2010Q4

REPORT INFORMATION
  Report Type: 
  Country: None (occurrence: None)
  Receive Date: 20101001
  Receipt Date: 20100927
  Transmission Date: 20110411
  Serious: Yes (Hospitalization, Disabling)
  Sender: FDA-Public Use
  Company Number: GB-ROCHE-536304

PATIENT
  Sex: Female
  Weight: 54 kg

DRUGS (15)
  1. BEVACIZUMAB [Suspect]
     Dosage: TREATMENT STOPPED; DATE OF MOST RECENT ADMINISTRATION: 21 APRIL 2008
     Route: 042
     Dates: start: 20070924
  2. CARBOPLATIN [Suspect]
     Route: 042
     Dates: start: 20070924, end: 20070924
  3. CARBOPLATIN [Suspect]
     Dosage: DOSE REPORTED AS 395, LAST DOSE PRIOR TO SAE: 28 JANUARY 2007
     Route: 042
     Dates: start: 20070924
  4. CARBOPLATIN [Suspect]
     Route: 042
     Dates: start: 20071015
  5. CARBOPLATIN [Suspect]
     Dosage: MOST RECENT DOSE ON 28 JANUARY 2008
     Route: 042
  6. TAXOL [Suspect]
     Dosage: DATE OF MOST RECENT ADMINISTRATION: 15 OCTOBER 2007
     Route: 042
     Dates: start: 20070924
  7. OXYCODONE [Concomitant]
     Dosage: DOSE REPORTED AS TDD: 40
     Route: 048
     Dates: start: 20080411
  8. HALOPERIDOL [Concomitant]
     Dosage: DOSE REPORTED AS TDD:15
     Route: 048
     Dates: start: 20080414
  9. DOCUSATE [Concomitant]
     Dosage: REPORTED AS TDD: 200
     Route: 048
     Dates: start: 20080414
  10. LANSOPRAZOLE [Concomitant]
     Route: 048
     Dates: start: 20080501
  11. METOCLOPRAMIDE [Concomitant]
     Route: 048
     Dates: start: 20071015, end: 20071018
  12. DEXAMETHASONE [Concomitant]
     Route: 048
     Dates: start: 20071015, end: 20071017
  13. FENTANYL [Concomitant]
     Dosage: DRUG: FENTANYL PATCH
     Route: 050
  14. NULYTELY [Concomitant]
     Route: 048
  15. PARACETAMOL [Concomitant]
     Route: 048

REACTIONS (3)
  - ABDOMINAL PAIN [None]
  - PERIPHERAL SENSORY NEUROPATHY [None]
  - SMALL INTESTINAL OBSTRUCTION [None]
